FAERS Safety Report 17685380 (Version 1)
Quarter: 2020Q2

REPORT INFORMATION
  Report Type: Spontaneous
  Country: US (occurrence: US)
  Receive Date: 20200420
  Receipt Date: 20200420
  Transmission Date: 20200714
  Serious: Yes (Hospitalization)
  Sender: FDA-Public Use
  Company Number: None

PATIENT
  Age: 56 Year
  Sex: Female
  Weight: 92.25 kg

DRUGS (9)
  1. BUTALBITAL, ACETAMINOPHEN, AND CAFFEINE [Concomitant]
     Active Substance: ACETAMINOPHEN\BUTALBITAL\CAFFEINE
  2. TIZANADINE 4MG [Concomitant]
  3. ZOLPIDEM [Concomitant]
     Active Substance: ZOLPIDEM TARTRATE
  4. KETOROLAC 60MG PRN [Concomitant]
  5. AIMOVIG [Suspect]
     Active Substance: ERENUMAB-AOOE
     Indication: MIGRAINE PROPHYLAXIS
     Dosage: ?          OTHER FREQUENCY:MONTHLY;?
     Route: 058
     Dates: start: 20181107, end: 20200205
  6. BUPROPRION XL 150MG [Concomitant]
     Active Substance: BUPROPION
  7. ZONISAMIDE 100MG [Concomitant]
     Active Substance: ZONISAMIDE
  8. ORPHENADRINE 100MG [Concomitant]
  9. VENLAFAXINE 75MG [Concomitant]
     Active Substance: VENLAFAXINE HYDROCHLORIDE

REACTIONS (4)
  - Cerebral haemorrhage [None]
  - Reversible cerebral vasoconstriction syndrome [None]
  - Subarachnoid haemorrhage [None]
  - Seizure [None]

NARRATIVE: CASE EVENT DATE: 20200205
